FAERS Safety Report 5034865-X (Version None)
Quarter: 2006Q2

REPORT INFORMATION
  Report Type: 
  Country: None (occurrence: None)
  Receive Date: 20060519
  Receipt Date: 20050523
  Transmission Date: 20061013
  Serious: Yes (Hospitalization)
  Sender: FDA-Public Use
  Company Number: ZONI002161

PATIENT
  Age: 48 Year
  Sex: Female

DRUGS (5)
  1. ZONEGRAN [Suspect]
     Indication: MIGRAINE
     Dosage: ORAL
     Route: 048
  2. LEXAPRO [Suspect]
     Indication: ANXIETY
     Dosage: 40 MG, 1 IN 1 D, ORAL
     Route: 048
     Dates: start: 20030101
  3. LEXAPRO [Suspect]
     Indication: DEPRESSION
     Dosage: 40 MG, 1 IN 1 D, ORAL
     Route: 048
     Dates: start: 20030101
  4. MORPHINE [Suspect]
     Indication: ARTHRALGIA
     Dates: start: 20040701, end: 20040701
  5. BEXTRA [Suspect]
     Indication: ARTHRITIS
     Dates: end: 20050323

REACTIONS (4)
  - ANKLE FRACTURE [None]
  - FALL [None]
  - HYPERSENSITIVITY [None]
  - RASH [None]
